FAERS Safety Report 20465327 (Version 1)
Quarter: 2022Q1

REPORT INFORMATION
  Report Type: Spontaneous
  Country: None (occurrence: US)
  Receive Date: 20220212
  Receipt Date: 20220212
  Transmission Date: 20220423
  Serious: Yes (Hospitalization, Other)
  Sender: FDA-Public Use
  Company Number: US-Sunstar Americas Inc.-2125831

PATIENT
  Sex: Female
  Weight: 102.3 kg

DRUGS (47)
  1. PAROEX [Suspect]
     Active Substance: CHLORHEXIDINE GLUCONATE
     Indication: Pharyngitis
     Route: 002
     Dates: start: 202010, end: 20201028
  2. SODIUM CHLORIDE [Concomitant]
     Active Substance: SODIUM CHLORIDE
     Route: 042
     Dates: start: 20201023, end: 20201023
  3. PHENYLEPHRINE HCL [Concomitant]
     Active Substance: PHENYLEPHRINE HYDROCHLORIDE
     Route: 042
     Dates: start: 20201023, end: 20201023
  4. VANCOMYCIN HYDROCHLORIDE [Concomitant]
     Active Substance: VANCOMYCIN HYDROCHLORIDE
     Route: 042
     Dates: start: 20201023, end: 20201023
  5. POTASSIUM CHLORIDE [Concomitant]
     Active Substance: POTASSIUM CHLORIDE
     Route: 042
     Dates: start: 20201028, end: 20201028
  6. SODIUM PHOSPHATES [Concomitant]
     Active Substance: SODIUM PHOSPHATE, DIBASIC, ANHYDROUS\SODIUM PHOSPHATE, DIBASIC, HEPTAHYDRATE\SODIUM PHOSPHATE, MONOB
     Route: 042
     Dates: start: 20201028, end: 20201028
  7. ACETAMINOPHEN [Concomitant]
     Active Substance: ACETAMINOPHEN
     Route: 042
     Dates: start: 20201023, end: 20201024
  8. ACETAMINOPHEN [Concomitant]
     Active Substance: ACETAMINOPHEN
     Route: 002
     Dates: start: 20201026, end: 20201026
  9. ALBUTEROL [Concomitant]
     Active Substance: ALBUTEROL
     Route: 055
     Dates: start: 20201028, end: 20201028
  10. BACITRACIN [Concomitant]
     Active Substance: BACITRACIN
     Route: 042
     Dates: start: 20201023, end: 20201023
  11. FREAMINE HBC [Concomitant]
     Active Substance: ALANINE\ARGININE\CYSTEINE HYDROCHLORIDE\GLYCINE\HISTIDINE\ISOLEUCINE\LEUCINE\LYSINE ACETATE\METHIONI
     Route: 042
     Dates: start: 20201028, end: 20201028
  12. CALCIUM GLUCONATE [Concomitant]
     Active Substance: CALCIUM GLUCONATE
     Route: 042
     Dates: start: 20201028, end: 20201028
  13. DEXMEDETOMIDINE HYDROCHLORIDE [Concomitant]
     Active Substance: DEXMEDETOMIDINE HYDROCHLORIDE
     Route: 042
     Dates: start: 20201028, end: 20201028
  14. DOCUSATE SODIUM [Concomitant]
     Active Substance: DOCUSATE SODIUM
     Route: 048
     Dates: start: 20201025, end: 20201026
  15. ENOXAPARIN SODIUM [Concomitant]
     Active Substance: ENOXAPARIN SODIUM
     Route: 042
     Dates: start: 20201024, end: 20201028
  16. FAMOTIDINE [Concomitant]
     Active Substance: FAMOTIDINE
     Route: 042
     Dates: start: 20201023, end: 20201023
  17. FENTANYL CITRATE [Concomitant]
     Active Substance: FENTANYL CITRATE
     Route: 042
     Dates: start: 20201023, end: 20201023
  18. FUROSEMIDE [Concomitant]
     Active Substance: FUROSEMIDE
     Route: 042
     Dates: start: 20201025, end: 20201025
  19. FUROSEMIDE [Concomitant]
     Active Substance: FUROSEMIDE
     Route: 042
     Dates: start: 20021027, end: 20201027
  20. HYDROMORPHONE HCL [Concomitant]
     Active Substance: HYDROMORPHONE HYDROCHLORIDE
     Dates: start: 20201023, end: 20201025
  21. LACTATED RINGERS AND DEXTROSE SOLUTION [Concomitant]
     Active Substance: CALCIUM CHLORIDE\DEXTROSE\DEXTROSE MONOHYDRATE\POTASSIUM CHLORIDE\SODIUM CHLORIDE\SODIUM LACTATE
     Route: 042
     Dates: start: 20201023, end: 20201025
  22. LEVOFLOXACIN [Concomitant]
     Active Substance: LEVOFLOXACIN
     Route: 042
     Dates: start: 20201028, end: 20201028
  23. LIDOCAINE HCI AND EPINEPHRINE [Concomitant]
     Active Substance: EPINEPHRINE\LIDOCAINE HYDROCHLORIDE
     Route: 042
     Dates: start: 20201028, end: 20201028
  24. MAGNESIUM CHLORIDE [Concomitant]
     Active Substance: MAGNESIUM CHLORIDE
     Route: 042
     Dates: start: 20201028, end: 20201028
  25. MIDAZOLAM [Concomitant]
     Active Substance: MIDAZOLAM
     Route: 042
     Dates: start: 20201026, end: 20201028
  26. MIDAZOLAM [Concomitant]
     Active Substance: MIDAZOLAM
     Route: 042
     Dates: start: 20201027, end: 20201027
  27. VANCOMYCIN HYDROCHLORIDE [Concomitant]
     Active Substance: VANCOMYCIN HYDROCHLORIDE
     Route: 042
     Dates: start: 20201024, end: 20201025
  28. MUPIROCIN [Concomitant]
     Active Substance: MUPIROCIN
     Route: 045
  29. ONDANSETRON [Concomitant]
     Active Substance: ONDANSETRON
     Route: 042
     Dates: start: 20201023, end: 20201023
  30. PANTOPRAZOLE SODIUM [Concomitant]
     Active Substance: PANTOPRAZOLE SODIUM
     Route: 042
     Dates: start: 20201024, end: 20201028
  31. POTASSIUM ACETATE [Concomitant]
     Active Substance: POTASSIUM ACETATE
     Route: 042
     Dates: start: 20201028, end: 20201028
  32. POTASSIUM BICARBONATE [Concomitant]
     Active Substance: POTASSIUM BICARBONATE
     Route: 002
     Dates: start: 20201026, end: 20201026
  33. POTASSIUM CHLORIDE [Concomitant]
     Active Substance: POTASSIUM CHLORIDE
     Route: 042
     Dates: start: 20201026, end: 20201026
  34. SENNA LIQUID [Concomitant]
     Active Substance: SENNOSIDES
     Route: 048
     Dates: start: 20201025, end: 20201026
  35. SODIUM BICARBONATE [Concomitant]
     Active Substance: SODIUM BICARBONATE
     Route: 042
     Dates: start: 20201025, end: 20201025
  36. BSS [Concomitant]
     Active Substance: CALCIUM CHLORIDE\MAGNESIUM CHLORIDE\POTASSIUM CHLORIDE\SODIUM ACETATE\SODIUM CHLORIDE\SODIUM CITRATE
     Route: 047
     Dates: start: 20201025, end: 20201028
  37. SODIUM ACETATE [Concomitant]
     Active Substance: SODIUM ACETATE
     Route: 042
     Dates: start: 20201028, end: 20201028
  38. SODIUM CHLORIDE [Concomitant]
     Active Substance: SODIUM CHLORIDE
     Route: 042
     Dates: start: 20201024, end: 20201025
  39. SODIUM CHLORIDE [Concomitant]
     Active Substance: SODIUM CHLORIDE
     Route: 042
     Dates: start: 20201024, end: 20201025
  40. METHOCARBAMOL [Concomitant]
     Active Substance: METHOCARBAMOL
     Route: 002
     Dates: start: 20201024, end: 20201027
  41. SODIUM CHLORIDE [Concomitant]
     Active Substance: SODIUM CHLORIDE
     Route: 042
     Dates: start: 20201028, end: 20201028
  42. VANCOMYCIN HYDROCHLORIDE [Concomitant]
     Active Substance: VANCOMYCIN HYDROCHLORIDE
     Route: 042
     Dates: start: 20201025, end: 20201028
  43. SODIUM PHOSPHATES [Concomitant]
     Active Substance: SODIUM PHOSPHATE, DIBASIC, ANHYDROUS\SODIUM PHOSPHATE, DIBASIC, HEPTAHYDRATE\SODIUM PHOSPHATE, MONOB
     Route: 042
     Dates: start: 20201028, end: 20201028
  44. MAGNESIUM SULFATE [Concomitant]
     Active Substance: MAGNESIUM SULFATE
     Route: 042
     Dates: start: 20201023, end: 20201026
  45. DEXTROSE MONOHYDRATE [Concomitant]
     Active Substance: DEXTROSE MONOHYDRATE
     Route: 042
     Dates: start: 20201028, end: 20201028
  46. FENTANYL CITRATE [Concomitant]
     Active Substance: FENTANYL CITRATE
     Route: 042
     Dates: start: 20201023, end: 20201028
  47. PROPOFOL [Concomitant]
     Active Substance: PROPOFOL
     Route: 042
     Dates: start: 20201023, end: 20201025

REACTIONS (3)
  - Hiatus hernia [Unknown]
  - Oesophageal obstruction [Unknown]
  - Burkholderia test positive [Unknown]

NARRATIVE: CASE EVENT DATE: 20201020
